FAERS Safety Report 6321667-7 (Version None)
Quarter: 2009Q3

REPORT INFORMATION
  Report Type: 
  Country: None (occurrence: None)
  Receive Date: 20090821
  Receipt Date: 20090821
  Transmission Date: 20100115
  Serious: Yes (Other)
  Sender: FDA-Public Use
  Company Number: None

PATIENT
  Age: 44 Year
  Sex: Female
  Weight: 96.1626 kg

DRUGS (2)
  1. LIDOCAINE [Suspect]
     Indication: MIGRAINE
     Dates: start: 20090101
  2. ZANAFLEX [Suspect]
     Indication: NECK PAIN
     Dosage: 20 MG

REACTIONS (3)
  - PAIN OF SKIN [None]
  - SKIN HAEMORRHAGE [None]
  - SKIN SWELLING [None]
